FAERS Safety Report 4561131-9 (Version None)
Quarter: 2005Q1

REPORT INFORMATION
  Report Type: 
  Country: None (occurrence: None)
  Receive Date: 20050120
  Receipt Date: 20050118
  Transmission Date: 20050727
  Serious: Yes (Life-Threatening, Hospitalization)
  Sender: FDA-Public Use
  Company Number: 2005GB00119

PATIENT
  Age: 33 Year
  Sex: Male
  Weight: 75 kg

DRUGS (1)
  1. ESOMEPRAZOLE [Suspect]
     Indication: DUODENAL ULCER
     Dosage: 40 MG QD PO
     Route: 048
     Dates: start: 20040701, end: 20041130

REACTIONS (8)
  - DYSPNOEA [None]
  - HYPOCALCAEMIA [None]
  - HYPOKALAEMIA [None]
  - HYPOPHOSPHATAEMIA [None]
  - MALAISE [None]
  - MUSCULAR WEAKNESS [None]
  - NEPHRITIS INTERSTITIAL [None]
  - RENAL TUBULAR ACIDOSIS [None]
